FAERS Safety Report 8901997 (Version 1)
Quarter: 2012Q4

REPORT INFORMATION
  Report Type: 
  Country: US (occurrence: US)
  Receive Date: 20121112
  Receipt Date: 20121112
  Transmission Date: 20130627
  Serious: Yes (Hospitalization, Other)
  Sender: FDA-Public Use
  Company Number: US-ELI_LILLY_AND_COMPANY-US201107008202

PATIENT
  Sex: Female

DRUGS (2)
  1. HUMALOG LISPRO [Suspect]
     Indication: TYPE 1 DIABETES MELLITUS
     Dosage: UNK, prn
     Route: 058
  2. HUMALOG LISPRO [Suspect]
     Dosage: UNK UNK, prn
     Dates: start: 2000

REACTIONS (9)
  - Colon operation [Recovered/Resolved]
  - Colostomy closure [Recovered/Resolved]
  - Blood glucose increased [Recovered/Resolved]
  - Blood glucose increased [Recovered/Resolved]
  - Drug ineffective [Recovered/Resolved]
  - Drug ineffective [Recovered/Resolved]
  - Macular degeneration [Not Recovered/Not Resolved]
  - Visual impairment [Unknown]
  - Medication error [Recovered/Resolved]
